FAERS Safety Report 6616201-8 (Version None)
Quarter: 2010Q1

REPORT INFORMATION
  Report Type: 
  Country: None (occurrence: None)
  Receive Date: 20100305
  Receipt Date: 20100225
  Transmission Date: 20100710
  Serious: Yes (Hospitalization)
  Sender: FDA-Public Use
  Company Number: PHHY2010GB06959

PATIENT
  Sex: Female

DRUGS (1)
  1. DICLOFENAC [Suspect]
     Dosage: 3 TABLETS DAILY

REACTIONS (5)
  - DEPRESSION [None]
  - MUSCLE ATROPHY [None]
  - RENAL FAILURE ACUTE [None]
  - SKIN HYPERPIGMENTATION [None]
  - WEIGHT DECREASED [None]
